FAERS Safety Report 9185825 (Version 2)
Quarter: 2013Q2

REPORT INFORMATION
  Report Type: Spontaneous
  Country: US (occurrence: US)
  Receive Date: 20130325
  Receipt Date: 20130408
  Transmission Date: 20140414
  Serious: Yes (Hospitalization)
  Sender: FDA-Public Use
  Company Number: US-SANOFI-AVENTIS-2013SA027769

PATIENT
  Age: 82 Year
  Sex: Male
  Weight: 77.11 kg

DRUGS (8)
  1. PLAQUENIL [Suspect]
     Indication: RHEUMATOID ARTHRITIS
  2. NORVASC [Suspect]
     Indication: HYPERTENSION
  3. LYRICA [Suspect]
     Indication: SPINAL DISORDER
     Dates: start: 201301
  4. LYRICA [Suspect]
     Indication: HYPOAESTHESIA
     Dates: start: 201301
  5. LISINOPRIL [Concomitant]
     Indication: HYPERTENSION
  6. PREDNISONE [Concomitant]
     Indication: RHEUMATOID ARTHRITIS
     Dosage: EVERY OTHER DAY
  7. METHOTREXATE [Concomitant]
  8. PAXIL [Concomitant]

REACTIONS (6)
  - Fall [Unknown]
  - Rib fracture [Unknown]
  - Suture insertion [Unknown]
  - Hypotension [Unknown]
  - Eye disorder [Unknown]
  - Fungal skin infection [Not Recovered/Not Resolved]
